FAERS Safety Report 5114685-8 (Version None)
Quarter: 2006Q3

REPORT INFORMATION
  Report Type: 
  Country: None (occurrence: None)
  Receive Date: 20060926
  Receipt Date: 20060914
  Transmission Date: 20061208
  Serious: Yes (Death, Other)
  Sender: FDA-Public Use
  Company Number: US-JNJFOC-20060903560

PATIENT
  Sex: Female

DRUGS (10)
  1. REMICADE [Suspect]
     Indication: RHEUMATOID ARTHRITIS
     Route: 042
  2. METHOTREXATE [Concomitant]
  3. RELAFEN [Concomitant]
  4. DEMEROL [Concomitant]
  5. MORPHINE [Concomitant]
  6. ARAVA [Concomitant]
  7. TUMS [Concomitant]
  8. MEDROL [Concomitant]
  9. VITAMIN D [Concomitant]
  10. LEUCOVORIN CALCIUM [Concomitant]

REACTIONS (2)
  - DEATH [None]
  - OVARIAN CANCER [None]
